FAERS Safety Report 13507477 (Version 1)
Quarter: 2017Q2

REPORT INFORMATION
  Report Type: Spontaneous
  Country: US (occurrence: US)
  Receive Date: 20170502
  Receipt Date: 20170502
  Transmission Date: 20170830
  Serious: Yes (Other)
  Sender: FDA-Public Use
  Company Number: None

PATIENT
  Age: 67 Year
  Sex: Female

DRUGS (1)
  1. TETRABENAZINE 12.5 MG SUN [Suspect]
     Active Substance: TETRABENAZINE
     Indication: CHOREA
     Route: 048
     Dates: start: 20160907

REACTIONS (4)
  - Suicidal ideation [None]
  - Rash [None]
  - Panic attack [None]
  - Stress [None]

NARRATIVE: CASE EVENT DATE: 20170302
